FAERS Safety Report 5684599-3 (Version None)
Quarter: 2008Q1

REPORT INFORMATION
  Report Type: 
  Country: None (occurrence: None)
  Receive Date: 20080328
  Receipt Date: 20070328
  Transmission Date: 20080703
  Serious: Yes (Life-Threatening)
  Sender: FDA-Public Use
  Company Number: US-BRISTOL-MYERS SQUIBB COMPANY-13730247

PATIENT
  Sex: Male
  Weight: 97 kg

DRUGS (4)
  1. CETUXIMAB [Suspect]
     Indication: COLON CANCER
     Route: 042
     Dates: start: 20070213, end: 20070213
  2. BENADRYL [Concomitant]
     Indication: PREMEDICATION
  3. ZOFRAN [Concomitant]
     Indication: PREMEDICATION
  4. DESAMETASONE [Concomitant]
     Indication: PREMEDICATION

REACTIONS (1)
  - ANAPHYLACTIC REACTION [None]
